FAERS Safety Report 6170027-0 (Version None)
Quarter: 2009Q2

REPORT INFORMATION
  Report Type: 
  Country: None (occurrence: None)
  Receive Date: 20090424
  Receipt Date: 20090108
  Transmission Date: 20091009
  Serious: No
  Sender: FDA-Public Use
  Company Number: ALL1-2008-03576

PATIENT
  Age: 54 Year
  Sex: Male
  Weight: 113.4 kg

DRUGS (5)
  1. VYVANSE [Suspect]
     Indication: ATTENTION DEFICIT/HYPERACTIVITY DISORDER
     Dosage: 50 MG, 1X/DAY QD, ORAL; 50 MG, 1X/DAY QD, ORAL
     Route: 048
     Dates: start: 20080602, end: 20080101
  2. VYVANSE [Suspect]
     Indication: ATTENTION DEFICIT/HYPERACTIVITY DISORDER
     Dosage: 50 MG, 1X/DAY QD, ORAL; 50 MG, 1X/DAY QD, ORAL
     Route: 048
     Dates: start: 20080101, end: 20081217
  3. AVODART [Concomitant]
  4. DEPAKOTE ER [Concomitant]
  5. TERAZOSIN HCL [Concomitant]

REACTIONS (1)
  - TIC [None]
